FAERS Safety Report 5605492-8 (Version None)
Quarter: 2008Q1

REPORT INFORMATION
  Report Type: 
  Country: None (occurrence: None)
  Receive Date: 20080129
  Receipt Date: 20080117
  Transmission Date: 20080703
  Serious: Yes (Hospitalization)
  Sender: FDA-Public Use
  Company Number: JP-JNJFOC-20071006779

PATIENT
  Sex: Male

DRUGS (6)
  1. CRAVIT [Suspect]
     Indication: BRONCHITIS
     Route: 048
  2. LOXONIN [Suspect]
     Indication: BRONCHITIS
     Route: 048
  3. MUCOSTA [Concomitant]
     Indication: BRONCHITIS
     Route: 048
  4. LYSOZYME HYDROCHLORIDE [Concomitant]
     Indication: BRONCHITIS
     Route: 065
  5. FLOMAX [Concomitant]
     Route: 065
  6. HEMONASE [Concomitant]
     Route: 065

REACTIONS (1)
  - CONVULSION [None]
